FAERS Safety Report 18289631 (Version 1)
Quarter: 2020Q3

REPORT INFORMATION
  Report Type: Spontaneous
  Country: US (occurrence: US)
  Receive Date: 20200921
  Receipt Date: 20200921
  Transmission Date: 20201103
  Serious: No
  Sender: FDA-Public Use
  Company Number: US-BRAINTREE LABORATORIES-190513

PATIENT
  Age: 79 Year
  Sex: Female
  Weight: 71.67 kg

DRUGS (1)
  1. SUPREP BOWEL PREP [Suspect]
     Active Substance: MAGNESIUM SULFATE\POTASSIUM SULFATE\SODIUM SULFATE
     Indication: COLONOSCOPY
     Dosage: 1 X 6 OZ. BOTTLE
     Route: 048
     Dates: start: 20190910, end: 20190910

REACTIONS (3)
  - Mouth injury [None]
  - Abnormal sensation in eye [None]
  - Vision blurred [None]

NARRATIVE: CASE EVENT DATE: 20190910
